FAERS Safety Report 4700276-7 (Version None)
Quarter: 2005Q2

REPORT INFORMATION
  Report Type: 
  Country: None (occurrence: None)
  Receive Date: 20050624
  Receipt Date: 20050624
  Transmission Date: 20051028
  Serious: Yes (Hospitalization)
  Sender: FDA-Public Use
  Company Number: None

PATIENT
  Sex: Female
  Weight: 81.7 kg

DRUGS (8)
  1. GEMTUZUMAB OZOGANICIN (GMTZ) [Suspect]
     Indication: ACUTE MYELOID LEUKAEMIA
     Dosage: 3 MG/M2 /DOSE IV
     Route: 042
     Dates: start: 20050220
  2. VANCOMYCIN [Suspect]
  3. CYTARABINE [Concomitant]
  4. DAUNORUBICIN [Concomitant]
  5. ETOPOSIDE [Concomitant]
  6. DEXAMETHASONE EYE DROPS [Concomitant]
  7. CEFTRIAXONE [Concomitant]
  8. CEFTAZIDIME [Concomitant]

REACTIONS (10)
  - BRAIN OEDEMA [None]
  - CONFUSIONAL STATE [None]
  - ECCHYMOSIS [None]
  - HYPERTENSION [None]
  - HYPOTENSION [None]
  - OXYGEN CONSUMPTION INCREASED [None]
  - PETECHIAE [None]
  - PURPURA [None]
  - PYREXIA [None]
  - RASH GENERALISED [None]
